FAERS Safety Report 15393136 (Version 1)
Quarter: 2018Q3

REPORT INFORMATION
  Report Type: Spontaneous
  Country: DE (occurrence: DE)
  Receive Date: 20180917
  Receipt Date: 20180917
  Transmission Date: 20181010
  Serious: Yes (Hospitalization, Other)
  Sender: FDA-Public Use
  Company Number: DE-B.I. PHARMACEUTICALS,INC./RIDGEFIELD-2018-BI-045158

PATIENT
  Age: 68 Year

DRUGS (2)
  1. VARGATEF [Suspect]
     Active Substance: NINTEDANIB
     Indication: LUNG ADENOCARCINOMA
     Route: 065
     Dates: start: 201504
  2. DOCETAXEL. [Concomitant]
     Active Substance: DOCETAXEL
     Indication: LUNG ADENOCARCINOMA
     Dosage: 75 MG/M2
     Route: 065
     Dates: start: 201504

REACTIONS (7)
  - Dyspnoea [Unknown]
  - Swollen tongue [Unknown]
  - Effusion [Unknown]
  - Malignant neoplasm progression [Unknown]
  - Haemorrhage [Recovered/Resolved]
  - Malignant neoplasm progression [Unknown]
  - Atelectasis [Unknown]

NARRATIVE: CASE EVENT DATE: 201510
